FAERS Safety Report 5270910-4 (Version None)
Quarter: 2007Q1

REPORT INFORMATION
  Report Type: 
  Country: None (occurrence: None)
  Receive Date: 20070321
  Receipt Date: 20070315
  Transmission Date: 20070707
  Serious: Yes (Life-Threatening, Disabling, Other)
  Sender: FDA-Public Use
  Company Number: JP-BAYER-200710160BYL

PATIENT
  Age: 75 Year
  Sex: Male
  Weight: 67 kg

DRUGS (5)
  1. NEXAVAR [Suspect]
     Indication: RENAL CELL CARCINOMA STAGE UNSPECIFIED
     Dosage: TOTAL DAILY DOSE: 400 MG  UNIT DOSE: 200 MG
     Route: 048
     Dates: start: 20061123, end: 20061206
  2. STOMILASE [Concomitant]
     Dosage: TOTAL DAILY DOSE: 0.9 G  UNIT DOSE: 0.3 G
     Route: 048
     Dates: start: 20060801
  3. HARNAL D [Concomitant]
     Dosage: TOTAL DAILY DOSE: 0.2 MG  UNIT DOSE: 0.2 MG
     Route: 048
     Dates: start: 20061001
  4. HUMALOG [Concomitant]
     Dosage: TOTAL DAILY DOSE: 27 U  UNIT DOSE: 100 U
     Route: 058
     Dates: start: 20060801
  5. LANTUS [Concomitant]
     Dosage: TOTAL DAILY DOSE: 9 U  UNIT DOSE: 300 U
     Route: 058
     Dates: start: 20060801

REACTIONS (5)
  - CARDIAC ARREST [None]
  - EPISTAXIS [None]
  - MELAENA [None]
  - NEUROPATHY PERIPHERAL [None]
  - PALMAR-PLANTAR ERYTHRODYSAESTHESIA SYNDROME [None]
